FAERS Safety Report 5972158-4 (Version None)
Quarter: 2008Q4

REPORT INFORMATION
  Report Type: 
  Country: None (occurrence: None)
  Receive Date: 20081201
  Receipt Date: 20080819
  Transmission Date: 20090506
  Serious: No
  Sender: FDA-Public Use
  Company Number: US-TEVA-176549USA

PATIENT
  Sex: Female

DRUGS (5)
  1. SALBUTAMOL SULFATE INHALATION, 0.09 MG [Suspect]
     Dosage: 2 PUFFS
     Route: 055
     Dates: start: 20080817, end: 20080817
  2. METFORMIN HCL [Concomitant]
  3. UNKNOWN BLOOD PRESSURE MED #1 [Concomitant]
  4. UNKNOWN BLOOD PRESSURE MED #2 [Concomitant]
  5. FLUTICASONE PROPIONATE [Concomitant]
     Route: 055

REACTIONS (1)
  - DIZZINESS [None]
